FAERS Safety Report 9677978 (Version 1)
Quarter: 2013Q4

REPORT INFORMATION
  Report Type: Spontaneous
  Country: US (occurrence: US)
  Receive Date: 20131108
  Receipt Date: 20131108
  Transmission Date: 20140711
  Serious: No
  Sender: FDA-Public Use
  Company Number: US-BAYER-2013-136258

PATIENT
  Age: 65 Year
  Sex: Female
  Weight: 90 kg

DRUGS (2)
  1. ALEVE TABLET [Suspect]
     Indication: ARTHRITIS
     Dosage: 4 DF, PRN
     Route: 048
     Dates: start: 20131103
  2. IBUPROFEN [Concomitant]

REACTIONS (1)
  - Incorrect dose administered [None]
